FAERS Safety Report 7246156-7 (Version None)
Quarter: 2011Q1

REPORT INFORMATION
  Report Type: 
  Country: None (occurrence: None)
  Receive Date: 20110126
  Receipt Date: 20110119
  Transmission Date: 20110831
  Serious: Yes (Other)
  Sender: FDA-Public Use
  Company Number: A0908781A

PATIENT
  Sex: Male

DRUGS (1)
  1. PAXIL [Suspect]
     Indication: DEPRESSION
     Route: 048
     Dates: start: 19980101, end: 20070101

REACTIONS (7)
  - THINKING ABNORMAL [None]
  - AGGRESSION [None]
  - WITHDRAWAL SYNDROME [None]
  - IMPULSIVE BEHAVIOUR [None]
  - SUICIDAL IDEATION [None]
  - ROAD TRAFFIC ACCIDENT [None]
  - DISINHIBITION [None]
